FAERS Safety Report 9791671 (Version 5)
Quarter: 2014Q2

REPORT INFORMATION
  Report Type: Report from Study
  Country: GB (occurrence: GB)
  Receive Date: 20140102
  Receipt Date: 20140616
  Transmission Date: 20141212
  Serious: Yes (Death, Hospitalization)
  Sender: FDA-Public Use
  Company Number: GB-ROCHE-1328236

PATIENT
  Age: 67 Year
  Sex: Male
  Weight: 61.5 kg

DRUGS (18)
  1. TRASTUZUMAB EMTANSINE [Suspect]
     Indication: HER-2 POSITIVE GASTRIC CANCER
     Dosage: DATE OF MOST RECENT DOSE ON 13/DEC/2013
     Route: 042
     Dates: start: 20131010
  2. CO-CODAMOL [Concomitant]
     Indication: PAIN
     Route: 065
     Dates: start: 201101
  3. SUCRALFATE [Concomitant]
     Indication: PAIN
     Route: 065
     Dates: start: 201101
  4. GABAPENTIN [Concomitant]
     Indication: NEUROPATHY PERIPHERAL
     Route: 065
     Dates: start: 2012
  5. TRANEXAMIC ACID [Concomitant]
     Indication: HAEMORRHAGE PROPHYLAXIS
     Route: 065
     Dates: start: 201210
  6. LANSOPRAZOLE [Concomitant]
     Indication: PROPHYLAXIS AGAINST GASTROINTESTINAL ULCER
     Route: 065
     Dates: start: 2012
  7. FERROUS FUMARATE [Concomitant]
     Indication: MINERAL SUPPLEMENTATION
     Route: 065
     Dates: start: 201212
  8. FINASTERIDE [Concomitant]
     Indication: PROSTATOMEGALY
     Route: 065
     Dates: start: 2003
  9. TERAZOSIN [Concomitant]
     Indication: PROSTATOMEGALY
     Route: 065
     Dates: start: 2003
  10. FENTANYL PATCH [Concomitant]
     Indication: ANALGESIC THERAPY
     Route: 065
     Dates: start: 201205
  11. ORAMORPH [Concomitant]
     Indication: PAIN
     Route: 065
     Dates: start: 2011
  12. CODEINE PHOSPHATE [Concomitant]
     Indication: ANALGESIC THERAPY
     Route: 065
     Dates: start: 201101
  13. BRICANYL [Concomitant]
     Indication: ASTHMA
     Route: 065
     Dates: start: 1980
  14. SYMBICORT [Concomitant]
     Indication: ASTHMA
     Dosage: INHALER
     Route: 065
     Dates: start: 1980
  15. SENNA [Concomitant]
     Indication: CONSTIPATION
     Route: 065
     Dates: start: 2012
  16. IBUPROFEN [Concomitant]
     Route: 065
     Dates: start: 20131028
  17. FLUOXETINE [Concomitant]
     Indication: DEPRESSED MOOD
     Route: 065
     Dates: start: 20131207
  18. LOPERAMIDE [Concomitant]
     Indication: DIARRHOEA
     Route: 065
     Dates: start: 20131211, end: 20131211

REACTIONS (1)
  - Gastric haemorrhage [Fatal]
